FAERS Safety Report 9687300 (Version 2)
Quarter: 2013Q4

REPORT INFORMATION
  Report Type: Spontaneous
  Country: US (occurrence: US)
  Receive Date: 20131114
  Receipt Date: 20131114
  Transmission Date: 20140711
  Serious: Yes (Other)
  Sender: FDA-Public Use
  Company Number: US-AMGEN-USASP2013074546

PATIENT
  Age: 77 Year
  Sex: Male

DRUGS (1)
  1. ARANESP [Suspect]
     Indication: PRODUCT USED FOR UNKNOWN INDICATION
     Dosage: 50 UNK, ONCE/WK
     Route: 042
     Dates: start: 20130713

REACTIONS (2)
  - Chronic obstructive pulmonary disease [Unknown]
  - Confusional state [Not Recovered/Not Resolved]
